FAERS Safety Report 7920744-4 (Version None)
Quarter: 2011Q4

REPORT INFORMATION
  Report Type: 
  Country: None (occurrence: None)
  Receive Date: 20111117
  Receipt Date: 20111109
  Transmission Date: 20120403
  Serious: Yes (Other)
  Sender: FDA-Public Use
  Company Number: CA-JNJFOC-20111105057

PATIENT
  Sex: Male
  Weight: 71 kg

DRUGS (4)
  1. REMICADE [Suspect]
     Indication: ANKYLOSING SPONDYLITIS
     Route: 042
     Dates: start: 20080903
  2. APO-KETO [Concomitant]
  3. CORTISONE ACETATE [Concomitant]
     Indication: PSORIASIS
  4. ACETAMINOPHEN [Concomitant]

REACTIONS (1)
  - UVEITIS [None]
